FAERS Safety Report 6289416-9 (Version None)
Quarter: 2009Q3

REPORT INFORMATION
  Report Type: 
  Country: None (occurrence: None)
  Receive Date: 20090728
  Receipt Date: 20090728
  Transmission Date: 20100115
  Serious: Yes (Hospitalization)
  Sender: FDA-Public Use
  Company Number: None

PATIENT
  Age: 52 Year
  Sex: Female

DRUGS (1)
  1. METFORMIN HCL [Suspect]
     Indication: DIABETES MELLITUS
     Dosage: 200 MG QHS PO
     Route: 048

REACTIONS (6)
  - BLOOD LACTIC ACID INCREASED [None]
  - HYPERVENTILATION [None]
  - HYPOVENTILATION [None]
  - METABOLIC ACIDOSIS [None]
  - RESPIRATORY DISTRESS [None]
  - SYSTEMIC INFLAMMATORY RESPONSE SYNDROME [None]
